FAERS Safety Report 8367813-5 (Version None)
Quarter: 2012Q2

REPORT INFORMATION
  Report Type: 
  Country: None (occurrence: None)
  Receive Date: 20120517
  Receipt Date: 20120515
  Transmission Date: 20120825
  Serious: Yes (Death)
  Sender: FDA-Public Use
  Company Number: US-INCYTE CORPORATION-2012IN000628

PATIENT
  Sex: Female
  Weight: 64.399 kg

DRUGS (10)
  1. LIPITOR [Concomitant]
  2. DIGOXIN [Concomitant]
  3. LASIX [Concomitant]
  4. SODIUM BICARBONATE [Concomitant]
  5. JAKAFI [Suspect]
     Indication: MYELOFIBROSIS
     Dosage: 10 MG, BID
     Route: 048
  6. DESFERAL [Concomitant]
  7. COREG [Concomitant]
  8. LISINOPRIL [Concomitant]
  9. FOLIC ACID [Concomitant]
  10. COUMADIN [Concomitant]

REACTIONS (1)
  - CEREBROVASCULAR ACCIDENT [None]
